FAERS Safety Report 19102444 (Version 1)
Quarter: 2021Q2

REPORT INFORMATION
  Report Type: Spontaneous
  Country: US (occurrence: US)
  Receive Date: 20210407
  Receipt Date: 20210407
  Transmission Date: 20210717
  Serious: Yes (Other)
  Sender: FDA-Public Use
  Company Number: None

PATIENT
  Age: 54 Year
  Sex: Female
  Weight: 97.2 kg

DRUGS (11)
  1. POTASSIUM CHLORIDE. [Concomitant]
     Active Substance: POTASSIUM CHLORIDE
     Dates: start: 20200129
  2. HYDROXYCHLOROQUINE [Concomitant]
     Active Substance: HYDROXYCHLOROQUINE
     Dates: start: 20210212
  3. VITAMIN D2 [Concomitant]
     Active Substance: ERGOCALCIFEROL
     Dates: start: 20210210
  4. MECOBALAMIN [Concomitant]
     Active Substance: METHYLCOBALAMIN
     Dates: start: 20210105
  5. SILDENAFIL. [Concomitant]
     Active Substance: SILDENAFIL
     Dates: start: 20200407
  6. TORSEMIDE. [Concomitant]
     Active Substance: TORSEMIDE
     Dates: start: 20200407
  7. FERROUS SULFATE. [Concomitant]
     Active Substance: FERROUS SULFATE
     Dates: start: 20210105
  8. FOLIC ACID. [Concomitant]
     Active Substance: FOLIC ACID
     Dates: start: 20180104
  9. BAMLANIVIMAB/ETESEVIMAB [Suspect]
     Active Substance: BAMLANIVIMAB\ETESEVIMAB
     Indication: COVID-19
     Dosage: ?          OTHER FREQUENCY:ONCE;?
     Route: 041
  10. SELEXIPAG [Concomitant]
     Active Substance: SELEXIPAG
     Dates: start: 20200708
  11. LETAIRIS [Concomitant]
     Active Substance: AMBRISENTAN
     Dates: start: 20200626

REACTIONS (7)
  - Hypotension [None]
  - Infusion related reaction [None]
  - Arthralgia [None]
  - Headache [None]
  - Back pain [None]
  - Pain in jaw [None]
  - Myalgia [None]

NARRATIVE: CASE EVENT DATE: 20210405
